FAERS Safety Report 25640812 (Version 2)
Quarter: 2025Q3

REPORT INFORMATION
  Report Type: Spontaneous
  Country: US (occurrence: US)
  Receive Date: 20250804
  Receipt Date: 20250812
  Transmission Date: 20251020
  Serious: No
  Sender: JOHNSON AND JOHNSON
  Company Number: US-JNJFOC-20250737624

PATIENT
  Age: 8 Decade
  Sex: Female

DRUGS (1)
  1. RYBREVANT [Suspect]
     Active Substance: AMIVANTAMAB-VMJW
     Indication: Non-small cell lung cancer
     Route: 065
     Dates: start: 202403

REACTIONS (7)
  - Vocal cord thickening [Unknown]
  - Vocal cord polyp [Unknown]
  - Fatigue [Unknown]
  - Stomatitis [Unknown]
  - Vomiting [Unknown]
  - Abdominal pain [Unknown]
  - Limb injury [Unknown]

NARRATIVE: CASE EVENT DATE: 20250601
